FAERS Safety Report 8550286-7 (Version None)
Quarter: 2012Q3

REPORT INFORMATION
  Report Type: 
  Country: None (occurrence: None)
  Receive Date: 20120730
  Receipt Date: 20120724
  Transmission Date: 20120928
  Serious: Yes (Other)
  Sender: FDA-Public Use
  Company Number: PHHY2012GB063577

PATIENT
  Age: 84 Year
  Sex: Female
  Weight: 81 kg

DRUGS (6)
  1. SENNA-MINT WAF [Concomitant]
  2. LACTULOSE [Concomitant]
  3. ANASTROZOLE [Suspect]
     Indication: BREAST CANCER
     Dosage: 1 MG
     Route: 048
     Dates: start: 20120621, end: 20120626
  4. LANSOPRAZOLE [Concomitant]
     Indication: DYSPEPSIA
     Dosage: 30 MG
     Route: 048
     Dates: start: 20000101
  5. VALSARTAN [Concomitant]
     Indication: HYPERTENSION
     Dosage: 160 MG
     Route: 048
     Dates: start: 20020929
  6. CITALOPRAM HYDROBROMIDE [Concomitant]
     Indication: DEPRESSION
     Dosage: 20 MG
     Route: 048
     Dates: start: 20120111

REACTIONS (1)
  - HALLUCINATION, VISUAL [None]
